FAERS Safety Report 7130970-2 (Version None)
Quarter: 2010Q4

REPORT INFORMATION
  Report Type: 
  Country: None (occurrence: None)
  Receive Date: 20101201
  Receipt Date: 20101123
  Transmission Date: 20110411
  Serious: Yes (Death, Hospitalization)
  Sender: FDA-Public Use
  Company Number: A0873830A

PATIENT
  Age: 60 Year
  Sex: Male
  Weight: 71.8 kg

DRUGS (8)
  1. HYCAMTIN [Suspect]
     Indication: SMALL CELL LUNG CANCER METASTATIC
     Dosage: 7.4MG PER DAY
     Route: 042
     Dates: start: 20100527, end: 20100603
  2. ZOFRAN [Concomitant]
     Indication: PROPHYLAXIS
     Route: 042
  3. DECADRON [Concomitant]
     Indication: PROPHYLAXIS
     Dosage: 10MG PER DAY
     Route: 042
  4. DILANTIN [Concomitant]
     Dosage: 100MG AT NIGHT
     Route: 048
  5. DECADRON [Concomitant]
     Dosage: 2MG FOUR TIMES PER DAY
     Route: 048
  6. ATIVAN [Concomitant]
     Dosage: .5MG AS REQUIRED
     Route: 048
  7. OXYCONTIN [Concomitant]
     Dosage: 50MG TWICE PER DAY
  8. OXYCODONE HCL [Concomitant]

REACTIONS (7)
  - BACTERIAL SEPSIS [None]
  - FALL [None]
  - HYPOTENSION [None]
  - LUNG NEOPLASM MALIGNANT [None]
  - RESPIRATORY DISTRESS [None]
  - SYNCOPE [None]
  - TACHYCARDIA [None]
